FAERS Safety Report 7292006-2 (Version None)
Quarter: 2011Q1

REPORT INFORMATION
  Report Type: 
  Country: None (occurrence: None)
  Receive Date: 20110215
  Receipt Date: 20110207
  Transmission Date: 20110831
  Serious: Yes (Hospitalization)
  Sender: FDA-Public Use
  Company Number: US-BIOGENIDEC-2010BI040261

PATIENT
  Age: 44 Year
  Sex: Male

DRUGS (13)
  1. TYSABRI [Suspect]
     Indication: MULTIPLE SCLEROSIS
     Route: 042
     Dates: start: 20100812, end: 20101008
  2. MEGACE [Concomitant]
  3. CLONAZEPAM [Concomitant]
  4. PLAVIX [Concomitant]
  5. FLAGYL [Concomitant]
  6. BACLOFEN [Concomitant]
  7. IMDUR [Concomitant]
  8. ATENOLOL [Concomitant]
  9. LEXAPRO [Concomitant]
  10. TREXONE [Concomitant]
  11. SIMVASTATIN [Concomitant]
  12. AMBIEN [Concomitant]
  13. PEPCID [Concomitant]

REACTIONS (6)
  - URINARY TRACT INFECTION [None]
  - FUNGAL INFECTION [None]
  - CANDIDURIA [None]
  - HYPOTENSION [None]
  - DECREASED APPETITE [None]
  - DYSPHAGIA [None]
